FAERS Safety Report 9519131 (Version 1)
Quarter: 2013Q3

REPORT INFORMATION
  Report Type: Spontaneous
  Country: US (occurrence: US)
  Receive Date: 20130912
  Receipt Date: 20130912
  Transmission Date: 20140515
  Serious: Yes (Other)
  Sender: FDA-Public Use
  Company Number: US-BAYER-2013-109362

PATIENT
  Age: 86 Year
  Sex: Male
  Weight: 73 kg

DRUGS (3)
  1. BAYER ASPIRIN REGIMEN ADULT LOW STRENGTH [Suspect]
     Indication: ISCHAEMIC HEART DISEASE PROPHYLAXIS
     Dosage: BOTTLE COUNT 200S
     Route: 048
     Dates: start: 1999, end: 201305
  2. COUMADIN [Concomitant]
  3. CRESTOR [Concomitant]

REACTIONS (1)
  - Epistaxis [Recovered/Resolved]
